FAERS Safety Report 13615460 (Version 4)
Quarter: 2017Q4

REPORT INFORMATION
  Report Type: Spontaneous
  Country: US (occurrence: US)
  Receive Date: 20170606
  Receipt Date: 20171003
  Transmission Date: 20180320
  Serious: Yes (Other)
  Sender: FDA-Public Use
  Company Number: US-PFIZER INC-2017243275

PATIENT
  Age: 37 Year
  Sex: Female

DRUGS (8)
  1. VESICARE [Concomitant]
     Active Substance: SOLIFENACIN SUCCINATE
     Dosage: 10 MG, 1X/DAY(QAM)
     Route: 048
     Dates: start: 201610
  2. VISTARIL [Concomitant]
     Active Substance: HYDROXYZINE PAMOATE
     Dosage: 25 MG, 1X/DAY (QHS)
     Route: 048
     Dates: start: 201610
  3. DIAZEPAM. [Concomitant]
     Active Substance: DIAZEPAM
     Dosage: 10 MG, AS NEEDED (ONE Q/W PRN)
     Route: 067
     Dates: start: 201612
  4. ELMIRON [Concomitant]
     Active Substance: PENTOSAN POLYSULFATE SODIUM
     Dosage: 100 MG, 3X/DAY
     Route: 048
     Dates: start: 201610
  5. LYRICA [Suspect]
     Active Substance: PREGABALIN
     Indication: CYSTITIS INTERSTITIAL
     Dosage: UNK
     Dates: end: 20160622
  6. LYRICA [Suspect]
     Active Substance: PREGABALIN
     Dosage: UNK, 3X/DAY
  7. LYRICA [Suspect]
     Active Substance: PREGABALIN
     Dosage: 150 MG, 2X/DAY
     Route: 048
     Dates: start: 20170616
  8. DICLOFENAC [Concomitant]
     Active Substance: DICLOFENAC
     Dosage: 75 MG, 2X/DAY
     Route: 048
     Dates: start: 201610

REACTIONS (5)
  - Neck pain [Unknown]
  - Back pain [Unknown]
  - Drug ineffective for unapproved indication [Unknown]
  - Drug dispensing error [Unknown]
  - Condition aggravated [Unknown]

NARRATIVE: CASE EVENT DATE: 2016
